FAERS Safety Report 6162586-9 (Version None)
Quarter: 2009Q2

REPORT INFORMATION
  Report Type: 
  Country: None (occurrence: None)
  Receive Date: 20090421
  Receipt Date: 20080307
  Transmission Date: 20091009
  Serious: No
  Sender: FDA-Public Use
  Company Number: US-ASTRAZENECA-2006UW09615

PATIENT
  Age: 72 Year
  Sex: Female
  Weight: 54.4 kg

DRUGS (6)
  1. ARIMIDEX [Suspect]
     Indication: BREAST CANCER
     Route: 048
     Dates: start: 20070101
  2. ARIMIDEX [Suspect]
     Route: 048
     Dates: start: 20040701, end: 20070224
  3. ACTONEL [Concomitant]
  4. TAGAMET [Concomitant]
  5. M.V.I. [Concomitant]
  6. ASPIRIN [Concomitant]

REACTIONS (6)
  - BLOOD CHOLESTEROL INCREASED [None]
  - CHILLS [None]
  - HYPERTENSION [None]
  - INSOMNIA [None]
  - OSTEOPOROSIS [None]
  - VAGINAL HAEMORRHAGE [None]
